FAERS Safety Report 7125363-8 (Version None)
Quarter: 2010Q4

REPORT INFORMATION
  Report Type: 
  Country: None (occurrence: None)
  Receive Date: 20101129
  Receipt Date: 20101116
  Transmission Date: 20110411
  Serious: Yes (Hospitalization)
  Sender: FDA-Public Use
  Company Number: TW-SANOFI-AVENTIS-2010SA070084

PATIENT
  Age: 65 Year
  Sex: Female

DRUGS (2)
  1. STILNOX [Suspect]
     Indication: INSOMNIA
     Dosage: APPROXIMATELY 10 IMMEDIATE-RELEASE TABLETS.
     Route: 048
     Dates: start: 20101101, end: 20101101
  2. STILNOX [Suspect]
     Dosage: APPROXIMATELY 10 IMMEDIATE-RELEASE TABLETS.
     Route: 048
     Dates: start: 20101101, end: 20101101

REACTIONS (3)
  - COMA [None]
  - INTENTIONAL OVERDOSE [None]
  - OCULOGYRIC CRISIS [None]
